FAERS Safety Report 8447934-9 (Version None)
Quarter: 2012Q2

REPORT INFORMATION
  Report Type: 
  Country: None (occurrence: None)
  Receive Date: 20120612
  Receipt Date: 20120604
  Transmission Date: 20120825
  Serious: Yes (Other)
  Sender: FDA-Public Use
  Company Number: DSA_56484_2012

PATIENT
  Sex: Male
  Weight: 72.5755 kg

DRUGS (11)
  1. CENTRUM /02217401/ [Concomitant]
  2. METOPROLOL TARTRATE [Concomitant]
  3. VITAMIN E [Concomitant]
  4. ZOCOR [Concomitant]
  5. SIMVASTATIN [Concomitant]
  6. ASPIRIN [Concomitant]
  7. XENAZINE [Suspect]
     Indication: HUNTINGTON'S DISEASE
     Dosage: SEE IMAGE
     Route: 048
     Dates: start: 20120101, end: 20120201
  8. XENAZINE [Suspect]
     Indication: HUNTINGTON'S DISEASE
     Dosage: SEE IMAGE
     Route: 048
     Dates: start: 20120529, end: 20120602
  9. XENAZINE [Suspect]
     Indication: HUNTINGTON'S DISEASE
     Dosage: SEE IMAGE
     Route: 048
     Dates: start: 20120201, end: 20120201
  10. XENAZINE [Suspect]
     Indication: HUNTINGTON'S DISEASE
     Dosage: SEE IMAGE
     Route: 048
     Dates: start: 20120603
  11. MULTI-VITAMINS [Concomitant]

REACTIONS (8)
  - MICTURITION URGENCY [None]
  - SOMNOLENCE [None]
  - SUICIDAL IDEATION [None]
  - DEPRESSION [None]
  - FATIGUE [None]
  - MUSCLE SPASMS [None]
  - TREMOR [None]
  - THINKING ABNORMAL [None]
